FAERS Safety Report 9528192 (Version 1)
Quarter: 2013Q1

REPORT INFORMATION
  Report Type: Spontaneous
  Country: US (occurrence: None)
  Receive Date: 20130314
  Receipt Date: 20130314
  Transmission Date: 20140127
  Serious: No
  Sender: FDA-Public Use
  Company Number: 1208USA001715

PATIENT
  Age: 63 Year
  Sex: Male

DRUGS (10)
  1. VICTRELIS [Suspect]
     Dosage: 800 MG, EVERY 7-9 HOURS, ORAL
  2. RIBAVIRIN [Suspect]
  3. PEGASYS [Suspect]
  4. ZYRTEC (CERTIRIZINE HYDROCHLORIDE) [Concomitant]
  5. TRAMADOL HYDROCHLORIDE [Concomitant]
  6. NAPROXEN [Concomitant]
  7. RANITIDINE [Concomitant]
  8. ZOFRAN (ONDANSETRON HYDROCHLORIDE) [Concomitant]
  9. CLOBETA CREAM (CLOBETASOL PROPIONATE) [Concomitant]
  10. TYLENO (ACETAMINOPHEN) [Concomitant]

REACTIONS (15)
  - Discomfort [None]
  - Lethargy [None]
  - Chromaturia [None]
  - Blood pressure increased [None]
  - Pain [None]
  - Oral herpes [None]
  - Depression [None]
  - Dry mouth [None]
  - Dyspnoea [None]
  - Dizziness [None]
  - Nausea [None]
  - Dysgeusia [None]
  - Headache [None]
  - Vertigo [None]
  - White blood cell count decreased [None]
